FAERS Safety Report 20111026 (Version 1)
Quarter: 2021Q4

REPORT INFORMATION
  Report Type: Spontaneous
  Country: US (occurrence: US)
  Receive Date: 20211125
  Receipt Date: 20211125
  Transmission Date: 20220303
  Serious: No
  Sender: FDA-Public Use
  Company Number: US-ALVOGEN-2020-ALVOGEN-115254

PATIENT
  Sex: Female

DRUGS (5)
  1. LISINOPRIL [Suspect]
     Active Substance: LISINOPRIL
     Indication: Product used for unknown indication
  2. EXENATIDE [Suspect]
     Active Substance: EXENATIDE
     Indication: Diabetes mellitus
     Dosage: ONCE A WEEK
  3. EXENATIDE [Suspect]
     Active Substance: EXENATIDE
     Indication: Diabetes mellitus
  4. INSULIN GLARGINE [Concomitant]
     Active Substance: INSULIN GLARGINE
     Indication: Diabetes mellitus
  5. INSULIN LISPRO [Concomitant]
     Active Substance: INSULIN LISPRO
     Indication: Diabetes mellitus

REACTIONS (8)
  - Diarrhoea [Unknown]
  - Weight decreased [Unknown]
  - Weight increased [Unknown]
  - Growth retardation [Unknown]
  - Medication error [Unknown]
  - Injection site haemorrhage [Unknown]
  - Injection site pain [Unknown]
  - Nodule [Unknown]
